FAERS Safety Report 4578230-8 (Version None)
Quarter: 2005Q1

REPORT INFORMATION
  Report Type: 
  Country: None (occurrence: None)
  Receive Date: 20050209
  Receipt Date: 20050126
  Transmission Date: 20050727
  Serious: Yes (Death)
  Sender: FDA-Public Use
  Company Number: 2004AL000572

PATIENT
  Age: 40 Year
  Sex: Male

DRUGS (2)
  1. KADIAN [Suspect]
     Dosage: PO
     Route: 048
  2. ETHANOL [Suspect]
     Dosage: PO
     Route: 048

REACTIONS (4)
  - CARDIO-RESPIRATORY ARREST [None]
  - FALL [None]
  - HEAD INJURY [None]
  - MULTIPLE DRUG OVERDOSE [None]
